FAERS Safety Report 4602167-9 (Version None)
Quarter: 2005Q2

REPORT INFORMATION
  Report Type: 
  Country: None (occurrence: None)
  Receive Date: 20050210
  Receipt Date: 20041021
  Transmission Date: 20051028
  Serious: Yes (Death)
  Sender: FDA-Public Use
  Company Number: 04-10-1484

PATIENT
  Age: 56 Year
  Sex: Female

DRUGS (2)
  1. CLOZAPINE [Suspect]
     Indication: SCHIZOPHRENIA
     Dosage: 700MG QD ORAL
     Route: 048
     Dates: start: 20040505, end: 20040901
  2. CLOZAPINE [Suspect]

REACTIONS (1)
  - UNEVALUABLE EVENT [None]
